FAERS Safety Report 8352928-8 (Version None)
Quarter: 2012Q2

REPORT INFORMATION
  Report Type: 
  Country: None (occurrence: None)
  Receive Date: 20120511
  Receipt Date: 20120501
  Transmission Date: 20120825
  Serious: Yes (Other)
  Sender: FDA-Public Use
  Company Number: IT-PFIZER INC-2012108785

PATIENT
  Age: 41 Year
  Sex: Male

DRUGS (2)
  1. FLUOXETINE [Suspect]
     Indication: DEPRESSION
     Dosage: 20 MG, 2X/DAY
     Dates: start: 19960201
  2. ALPRAZOLAM [Suspect]
     Dosage: 0.25 MG, 2X/DAY
     Dates: start: 19960201

REACTIONS (8)
  - HYPERHIDROSIS [None]
  - TREMOR [None]
  - SOMNOLENCE [None]
  - PHOTOSENSITIVITY REACTION [None]
  - WEIGHT DECREASED [None]
  - JOINT SWELLING [None]
  - HYPERTENSION [None]
  - ARTHRALGIA [None]
